FAERS Safety Report 18565019 (Version 1)
Quarter: 2020Q4

REPORT INFORMATION
  Report Type: Spontaneous
  Country: US (occurrence: US)
  Receive Date: 20201201
  Receipt Date: 20201201
  Transmission Date: 20210114
  Serious: No
  Sender: FDA-Public Use
  Company Number: None

PATIENT
  Age: 46 Year
  Sex: Male
  Weight: 161 kg

DRUGS (4)
  1. VANCOMYCIN IV [Concomitant]
     Active Substance: VANCOMYCIN HYDROCHLORIDE
     Dates: start: 20201130, end: 20201130
  2. DEXAMETHASONE 6 MG PO BID [Concomitant]
     Dates: start: 20201126
  3. REMDESIVIR. [Suspect]
     Active Substance: REMDESIVIR
     Indication: COVID-19
     Route: 042
     Dates: start: 20201126, end: 20201130
  4. ENOXAPARIN 40 MG SC Q12H [Concomitant]
     Dates: start: 20201124

REACTIONS (5)
  - Infusion site extravasation [None]
  - Infusion site swelling [None]
  - Infusion site erythema [None]
  - Infusion site warmth [None]
  - Infusion site induration [None]

NARRATIVE: CASE EVENT DATE: 20201130
